FAERS Safety Report 17706393 (Version 1)
Quarter: 2020Q2

REPORT INFORMATION
  Report Type: Report from Study
  Country: NL (occurrence: NL)
  Receive Date: 20200424
  Receipt Date: 20200424
  Transmission Date: 20200714
  Serious: Yes (Hospitalization)
  Sender: FDA-Public Use
  Company Number: NL-TOLMAR, INC.-20NL021078

PATIENT
  Sex: Male

DRUGS (1)
  1. ELIGARD [Suspect]
     Active Substance: LEUPROLIDE ACETATE
     Indication: PROSTATE CANCER
     Dosage: 45 MG, Q 6 MONTH (EVERY 26 WEEKS)
     Route: 058
     Dates: start: 20191106

REACTIONS (2)
  - Lymphoedema [Not Recovered/Not Resolved]
  - Lymphadenopathy [Not Recovered/Not Resolved]
